FAERS Safety Report 9636575 (Version 2)
Quarter: 2014Q1

REPORT INFORMATION
  Report Type: Spontaneous
  Country: US (occurrence: US)
  Receive Date: 20131021
  Receipt Date: 20140113
  Transmission Date: 20141002
  Serious: Yes (Death, Life-Threatening, Hospitalization, Other)
  Sender: FDA-Public Use
  Company Number: US-ASTRAZENECA-2013SE77053

PATIENT
  Sex: Female

DRUGS (1)
  1. CAPRELSA [Suspect]
     Indication: MEDULLARY THYROID CANCER
     Dosage: UNKNOWN
     Route: 048
     Dates: end: 2013

REACTIONS (4)
  - Abscess [Unknown]
  - Death [Fatal]
  - Diverticulitis [Unknown]
  - Diverticular perforation [Unknown]
